FAERS Safety Report 8591061-7 (Version None)
Quarter: 2012Q3

REPORT INFORMATION
  Report Type: 
  Country: None (occurrence: None)
  Receive Date: 20120813
  Receipt Date: 20120807
  Transmission Date: 20120928
  Serious: Yes (Hospitalization)
  Sender: FDA-Public Use
  Company Number: IT-TEVA-353147USA

PATIENT
  Sex: Male

DRUGS (10)
  1. RITUXIMAB [Suspect]
     Indication: MANTLE CELL LYMPHOMA
     Dosage: 375 MG/M2, CYCLIC
     Route: 042
     Dates: start: 20120625
  2. CYTARABINE [Suspect]
     Indication: MANTLE CELL LYMPHOMA
     Dosage: 500 MG/M2, CYCLIC
     Route: 042
     Dates: start: 20120625
  3. FLUCONAZOLE [Concomitant]
     Dates: start: 20120703
  4. ALLOPURINOL [Concomitant]
     Dates: start: 20120528
  5. TETRACOSACTIDE [Concomitant]
     Dates: start: 20120628
  6. TREANDA [Suspect]
     Indication: MANTLE CELL LYMPHOMA
     Dosage: 70 MG/M2, CYCLIC
     Route: 042
     Dates: start: 20120626
  7. SULFAMETHOXAZOLE AND TRIMETHOPRIM [Concomitant]
     Dates: start: 20120611
  8. DARBEPOETIN ALFA [Concomitant]
     Dates: start: 20120702
  9. PEGFILGASTRIM [Concomitant]
     Dates: start: 20120629
  10. AMOXICILLIN AND CLAVULANATE POTASSIUM [Concomitant]
     Dates: start: 20120703

REACTIONS (2)
  - PYREXIA [None]
  - EPISTAXIS [None]
